FAERS Safety Report 20761214 (Version 1)
Quarter: 2022Q2

REPORT INFORMATION
  Report Type: Spontaneous
  Country: None (occurrence: US)
  Receive Date: 20220428
  Receipt Date: 20220428
  Transmission Date: 20220721
  Serious: No
  Sender: FDA-Public Use
  Company Number: US-Kindeva Drug Delivery L.P.-2128239

PATIENT
  Sex: Female

DRUGS (1)
  1. ALBUTEROL SULFATE [Suspect]
     Active Substance: ALBUTEROL SULFATE
     Indication: Asthma exercise induced
     Route: 055
     Dates: start: 20211101

REACTIONS (1)
  - Device malfunction [Unknown]
